FAERS Safety Report 12266307 (Version 3)
Quarter: 2016Q2

REPORT INFORMATION
  Report Type: Spontaneous
  Country: US (occurrence: US)
  Receive Date: 20160413
  Receipt Date: 20160512
  Transmission Date: 20160815
  Serious: Yes (Other)
  Sender: FDA-Public Use
  Company Number: US-009507513-1604USA002453

PATIENT
  Age: 26 Year
  Sex: Female
  Weight: 107.94 kg

DRUGS (1)
  1. GRASTEK [Suspect]
     Active Substance: PHLEUM PRATENSE POLLEN
     Indication: RHINITIS ALLERGIC
     Dosage: CONCENTRATION: 2800 BIOEQUIVALENT ALLERGY UNITS (BAU).; DOSAGE: 2800 BAU, ONCE A DAY
     Route: 060
     Dates: start: 20160318, end: 20160324

REACTIONS (2)
  - Skin atrophy [Recovered/Resolved]
  - Angioedema [Recovered/Resolved]

NARRATIVE: CASE EVENT DATE: 20160401
